FAERS Safety Report 10466758 (Version 1)
Quarter: 2014Q3

REPORT INFORMATION
  Report Type: Spontaneous
  Country: IT (occurrence: IT)
  Receive Date: 20140922
  Receipt Date: 20140922
  Transmission Date: 20150326
  Serious: Yes (Hospitalization)
  Sender: FDA-Public Use
  Company Number: IT-TEVA-508579ISR

PATIENT
  Age: 63 Year
  Sex: Female

DRUGS (5)
  1. TALOFEN [Concomitant]
     Active Substance: PROMAZINE HYDROCHLORIDE
     Dosage: 12 GTT DAILY;
  2. SEROQUEL [Concomitant]
     Active Substance: QUETIAPINE FUMARATE
  3. EN [Concomitant]
     Active Substance: DELORAZEPAM
     Dosage: 8 GTT DAILY;
  4. CARBOLITHIUM 300 MG [Suspect]
     Active Substance: LITHIUM CARBONATE
     Dosage: 30 DOSAGE FORMS DAILY;
     Route: 048
     Dates: start: 20140907, end: 20140907
  5. CARBOLITHIUM 300 MG [Suspect]
     Active Substance: LITHIUM CARBONATE
     Dosage: 900 MILLIGRAM DAILY;
     Route: 048

REACTIONS (5)
  - Agitation [Recovered/Resolved]
  - Intentional self-injury [Recovered/Resolved]
  - Flushing [Recovered/Resolved]
  - Drug abuse [Recovered/Resolved]
  - Vertigo [Recovered/Resolved]

NARRATIVE: CASE EVENT DATE: 20140907
